FAERS Safety Report 11192173 (Version 1)
Quarter: 2015Q2

REPORT INFORMATION
  Report Type: Spontaneous
  Country: US (occurrence: None)
  Receive Date: 20150612
  Receipt Date: 20150612
  Transmission Date: 20150821
  Serious: Yes (Death, Hospitalization)
  Sender: FDA-Public Use
  Company Number: USW201503-000081

PATIENT
  Age: 72 Year
  Sex: Male
  Weight: 81.64 kg

DRUGS (1)
  1. APOKYN [Suspect]
     Active Substance: APOMORPHINE HYDROCHLORIDE
     Indication: PARKINSON^S DISEASE
     Dosage: 4-5 TIMES A DAY
     Dates: start: 20150106

REACTIONS (6)
  - Blood pressure decreased [None]
  - Neuroendocrine carcinoma of the skin [None]
  - Malignant neoplasm progression [None]
  - Fall [None]
  - Anxiety [None]
  - Parkinson^s disease [None]
